FAERS Safety Report 13921206 (Version 2)
Quarter: 2017Q3

REPORT INFORMATION
  Report Type: Report from Study
  Country: None (occurrence: GB)
  Receive Date: 20170830
  Receipt Date: 20170901
  Transmission Date: 20171127
  Serious: Yes (Other)
  Sender: FDA-Public Use
  Company Number: GB-ABBVIE-17K-167-1964694-00

PATIENT
  Sex: Female
  Weight: 75.3 kg

DRUGS (1)
  1. HUMIRA [Suspect]
     Active Substance: ADALIMUMAB
     Indication: PSORIASIS
     Route: 058
     Dates: start: 20121120, end: 20160804

REACTIONS (5)
  - Prolonged labour [Unknown]
  - Live birth [Unknown]
  - Postoperative wound infection [Unknown]
  - Exposure during pregnancy [Unknown]
  - Cervix inflammation [Unknown]

NARRATIVE: CASE EVENT DATE: 2017
